FAERS Safety Report 16677824 (Version 1)
Quarter: 2019Q3

REPORT INFORMATION
  Report Type: Spontaneous
  Country: US (occurrence: US)
  Receive Date: 20190806
  Receipt Date: 20190806
  Transmission Date: 20191004
  Serious: Yes (Other)
  Sender: FDA-Public Use
  Company Number: None

PATIENT
  Age: 80 Year
  Sex: Female

DRUGS (2)
  1. TETRAVISC [Suspect]
     Active Substance: TETRACAINE HYDROCHLORIDE
     Indication: ANAESTHESIA
     Dosage: ?          OTHER FREQUENCY:1;?
     Route: 061
     Dates: start: 20190730
  2. TETRAVISC [Concomitant]
     Active Substance: TETRACAINE HYDROCHLORIDE
     Dates: start: 20190730, end: 20190730

REACTIONS (4)
  - Endophthalmitis [None]
  - Recalled product administered [None]
  - Blindness [None]
  - Vitreous opacities [None]

NARRATIVE: CASE EVENT DATE: 20190730
